FAERS Safety Report 4318352-X (Version None)
Quarter: 2004Q1

REPORT INFORMATION
  Report Type: 
  Country: None (occurrence: None)
  Receive Date: 20040315
  Receipt Date: 20040301
  Transmission Date: 20041129
  Serious: Yes (Death)
  Sender: FDA-Public Use
  Company Number: F01200400422

PATIENT
  Age: 63 Year
  Sex: Male

DRUGS (2)
  1. (OXALIPLATIN) - SOLUTION - 228 MG [Suspect]
     Indication: COLORECTAL CANCER METASTATIC
     Dosage: 228 MG Q3W
     Route: 042
     Dates: start: 20040210, end: 20040210
  2. (CAPECITABINE) - TABLET - 3500 MG [Suspect]
     Dosage: 3500 MG TWICE DASILY FROM DAY 1 TO DAY 15, Q3W
     Route: 048
     Dates: start: 20040210, end: 20040223

REACTIONS (2)
  - ABSCESS [None]
  - SEPTIC SHOCK [None]
